FAERS Safety Report 15839776 (Version 6)
Quarter: 2020Q2

REPORT INFORMATION
  Report Type: Report from Study
  Country: AU (occurrence: AU)
  Receive Date: 20190117
  Receipt Date: 20200508
  Transmission Date: 20200713
  Serious: Yes (Hospitalization)
  Sender: FDA-Public Use
  Company Number: AU-EISAI MEDICAL RESEARCH-EC-2018-049601

PATIENT
  Age: 81 Year
  Sex: Male
  Weight: 101.1 kg

DRUGS (12)
  1. PARACETAMOL [Concomitant]
     Active Substance: ACETAMINOPHEN
  2. INSULIN [Concomitant]
     Active Substance: INSULIN NOS
  3. IMODIUM [Concomitant]
     Active Substance: LOPERAMIDE HYDROCHLORIDE
  4. LENVATINIB [Suspect]
     Active Substance: LENVATINIB
     Indication: THYROID CANCER
     Route: 048
     Dates: start: 20180514, end: 20181028
  5. IRBESARTAN. [Concomitant]
     Active Substance: IRBESARTAN
  6. LENVATINIB [Suspect]
     Active Substance: LENVATINIB
     Route: 048
     Dates: start: 20190107, end: 20190314
  7. B12 INJECTION [Concomitant]
  8. REANDRON [Concomitant]
     Active Substance: TESTOSTERONE
  9. LENVATINIB [Suspect]
     Active Substance: LENVATINIB
     Route: 048
     Dates: start: 20181112, end: 20181221
  10. CLEXANE [Concomitant]
     Active Substance: ENOXAPARIN SODIUM
  11. THYROXINE [Concomitant]
     Active Substance: LEVOTHYROXINE
  12. ALLOPURINOL. [Concomitant]
     Active Substance: ALLOPURINOL

REACTIONS (2)
  - Localised infection [Recovered/Resolved with Sequelae]
  - Pulmonary embolism [Recovering/Resolving]

NARRATIVE: CASE EVENT DATE: 20181221
